FAERS Safety Report 17547842 (Version 1)
Quarter: 2020Q1

REPORT INFORMATION
  Report Type: Spontaneous
  Country: US (occurrence: US)
  Receive Date: 20200316
  Receipt Date: 20200316
  Transmission Date: 20200409
  Serious: No
  Sender: FDA-Public Use
  Company Number: US-009507513-2003USA004526

PATIENT
  Age: 35 Year
  Sex: Female
  Weight: 72.57 kg

DRUGS (2)
  1. IRON (UNSPECIFIED) [Concomitant]
     Active Substance: IRON
     Indication: IRON DEFICIENCY ANAEMIA
  2. NEXPLANON [Suspect]
     Active Substance: ETONOGESTREL
     Indication: CONTRACEPTION
     Dosage: 1 IMPLANT, LEFT ARM; FREQUENCY:5 YEARS
     Route: 059
     Dates: start: 20191204

REACTIONS (3)
  - Inappropriate schedule of product administration [Unknown]
  - Menometrorrhagia [Not Recovered/Not Resolved]
  - Menstrual disorder [Not Recovered/Not Resolved]

NARRATIVE: CASE EVENT DATE: 20191204
